FAERS Safety Report 5418857-4 (Version None)
Quarter: 2007Q3

REPORT INFORMATION
  Report Type: 
  Country: None (occurrence: None)
  Receive Date: 20070718
  Receipt Date: 20060717
  Transmission Date: 20080115
  Serious: Yes (Hospitalization)
  Sender: FDA-Public Use
  Company Number: 2006090694

PATIENT
  Age: 63 Year
  Sex: Female
  Weight: 88.4514 kg

DRUGS (5)
  1. CELEBREX [Suspect]
     Indication: PAIN
     Dosage: 400 MG (200 MG, 3 IN 1 D)
  2. BEXTRA [Suspect]
     Indication: PAIN
     Dosage: 40 MG (20 MG, 2 IN 1 D)
  3. IBUPROFEN [Concomitant]
  4. DIOVAN [Concomitant]
  5. LABETALOL [Concomitant]

REACTIONS (1)
  - CARDIAC FAILURE CONGESTIVE [None]
